FAERS Safety Report 7348237-6 (Version None)
Quarter: 2011Q1

REPORT INFORMATION
  Report Type: 
  Country: None (occurrence: None)
  Receive Date: 20110311
  Receipt Date: 20110309
  Transmission Date: 20110831
  Serious: No
  Sender: FDA-Public Use
  Company Number: US-CEPHALON-2011001102

PATIENT
  Sex: Male

DRUGS (1)
  1. FENTORA [Suspect]
     Indication: NECK PAIN
     Route: 002
     Dates: start: 20110308

REACTIONS (4)
  - DRUG ADMINISTRATION ERROR [None]
  - WITHDRAWAL SYNDROME [None]
  - DRUG PRESCRIBING ERROR [None]
  - DRUG INEFFECTIVE FOR UNAPPROVED INDICATION [None]
